FAERS Safety Report 8760033 (Version 4)
Quarter: 2012Q4

REPORT INFORMATION
  Report Type: 
  Country: DE (occurrence: DE)
  Receive Date: 20120829
  Receipt Date: 20121026
  Transmission Date: 20130627
  Serious: Yes (Life-Threatening, Hospitalization, Disabling, Other)
  Sender: FDA-Public Use
  Company Number: DE-ROCHE-1108271

PATIENT
  Age: 56 Year
  Sex: Male

DRUGS (6)
  1. MABTHERA [Suspect]
     Indication: B-CELL LYMPHOMA
     Route: 042
     Dates: start: 2010, end: 201101
  2. BENDAMUSTINE [Suspect]
     Indication: B-CELL LYMPHOMA
     Route: 042
     Dates: start: 201010
  3. PREDNISONE [Concomitant]
     Indication: B-CELL LYMPHOMA
     Route: 065
     Dates: start: 201101, end: 201102
  4. VINCRISTINE [Concomitant]
     Indication: B-CELL LYMPHOMA
     Route: 065
     Dates: start: 201101, end: 201102
  5. MITOXANTRONE [Concomitant]
     Indication: B-CELL LYMPHOMA
     Route: 065
     Dates: start: 201101, end: 201102
  6. CYCLOPHOSPHAMIDE [Concomitant]
     Indication: B-CELL LYMPHOMA
     Route: 065
     Dates: start: 201101, end: 201102

REACTIONS (3)
  - Progressive multifocal leukoencephalopathy [Unknown]
  - Drug hypersensitivity [Unknown]
  - Pyrexia [Unknown]
